FAERS Safety Report 23506169 (Version 2)
Quarter: 2024Q2

REPORT INFORMATION
  Report Type: Report from Study
  Country: US (occurrence: US)
  Receive Date: 20240209
  Receipt Date: 20240503
  Transmission Date: 20240716
  Serious: Yes (Other)
  Sender: FDA-Public Use
  Company Number: US-SUN PHARMACEUTICAL INDUSTRIES LTD-2024R1-430576

PATIENT
  Age: 72 Year
  Sex: Female

DRUGS (2)
  1. CLOZAPINE [Suspect]
     Active Substance: CLOZAPINE
     Indication: Psychotic disorder due to a general medical condition
     Dosage: UNK (ONCE DALIY AT BEDTIME)
     Route: 048
     Dates: start: 20231222, end: 20240127
  2. CLOZAPINE [Suspect]
     Active Substance: CLOZAPINE
     Indication: Hallucination

REACTIONS (1)
  - Neutropenia [Recovered/Resolved]

NARRATIVE: CASE EVENT DATE: 20240125
